FAERS Safety Report 12921414 (Version 2)
Quarter: 2017Q1

REPORT INFORMATION
  Report Type: Spontaneous
  Country: US (occurrence: US)
  Receive Date: 20161108
  Receipt Date: 20170206
  Transmission Date: 20170428
  Serious: Yes (Other)
  Sender: FDA-Public Use
  Company Number: US-WARNER CHILCOTT, LLC-1059324

PATIENT
  Age: 63 Year
  Sex: Female

DRUGS (6)
  1. HORMONES [Concomitant]
     Active Substance: UNSPECIFIED INGREDIENT
  2. FEMRING [Suspect]
     Active Substance: ESTRADIOL ACETATE
     Route: 067
  3. WESTHROID [Concomitant]
     Active Substance: THYROGLOBULIN
  4. FLUOXETINE [Concomitant]
     Active Substance: FLUOXETINE HYDROCHLORIDE
  5. ALLERGY MEDICATION [Concomitant]
     Active Substance: DIPHENHYDRAMINE HYDROCHLORIDE
  6. BABY ASPIRIN [Concomitant]
     Active Substance: ASPIRIN

REACTIONS (2)
  - Vaginal haemorrhage [Recovered/Resolved]
  - Vaginal erosion [Recovered/Resolved]
